FAERS Safety Report 6082792-1 (Version None)
Quarter: 2009Q1

REPORT INFORMATION
  Report Type: 
  Country: None (occurrence: None)
  Receive Date: 20090202
  Receipt Date: 20070417
  Transmission Date: 20090719
  Serious: Yes (Life-Threatening)
  Sender: FDA-Public Use
  Company Number: 261819

PATIENT
  Sex: Female

DRUGS (9)
  1. NOVOLOG [Suspect]
     Indication: DIABETES MELLITUS
     Dosage: SLIDING SCALE, SUBCUTANEOUS
     Route: 058
     Dates: start: 20070201
  2. NEURONTIN [Concomitant]
  3. PROCRIT [Concomitant]
  4. AMITRIPTYLINE HYDROCHLORIDE [Concomitant]
  5. PROZAC [Concomitant]
  6. REGLAN /00041901/ (METOCLOPRAMIDE) [Concomitant]
  7. CALCITROL (CALCIUM CARBONATE, ERGOCALCIFEROL, RETINOL) [Concomitant]
  8. FEMHRT [Concomitant]
  9. LANTUS [Concomitant]

REACTIONS (1)
  - HYPOGLYCAEMIC UNCONSCIOUSNESS [None]
